FAERS Safety Report 13363957 (Version 1)
Quarter: 2017Q1

REPORT INFORMATION
  Report Type: Spontaneous
  Country: GB (occurrence: GB)
  Receive Date: 20170323
  Receipt Date: 20170323
  Transmission Date: 20170429
  Serious: Yes (Hospitalization)
  Sender: FDA-Public Use
  Company Number: GB-009507513-1703GBR010145

PATIENT
  Age: 88 Year
  Sex: Female
  Weight: 82 kg

DRUGS (41)
  1. ADCAL (CALCIUM CARBONATE) [Concomitant]
     Active Substance: CALCIUM CARBONATE
     Dates: start: 20170210
  2. AMISULPRIDE [Concomitant]
     Active Substance: AMISULPRIDE
     Dosage: FOR 5 DAYS.
     Dates: start: 20170116, end: 20170117
  3. ELIQUIS [Concomitant]
     Active Substance: APIXABAN
     Dates: start: 20170227, end: 20170314
  4. CLENIL MODULITE [Concomitant]
     Active Substance: BECLOMETHASONE DIPROPIONATE
     Route: 055
     Dates: start: 20160615, end: 20170227
  5. AMITRIPTYLINE HYDROCHLORIDE. [Concomitant]
     Active Substance: AMITRIPTYLINE HYDROCHLORIDE
     Dosage: AT NIGHT
     Dates: start: 20160615, end: 20170227
  6. AMISULPRIDE [Concomitant]
     Active Substance: AMISULPRIDE
     Dosage: EACH MORNING
     Dates: start: 20160615
  7. AMISULPRIDE [Concomitant]
     Active Substance: AMISULPRIDE
     Dates: start: 20160615
  8. AMISULPRIDE [Concomitant]
     Active Substance: AMISULPRIDE
     Route: 055
     Dates: start: 20160615, end: 20170227
  9. AMISULPRIDE [Concomitant]
     Active Substance: AMISULPRIDE
     Dosage: AT NIGHT
     Dates: start: 20160615, end: 20170110
  10. MOVICOL [Concomitant]
     Active Substance: POLYETHYLENE GLYCOL 3350\POTASSIUM CHLORIDE\SODIUM BICARBONATE\SODIUM CHLORIDE
     Dosage: TAKE BETWEEN ONCE AND THREE TIMES DAILY
     Dates: start: 20160615
  11. LEVOTHYROXINE SODIUM. [Concomitant]
     Active Substance: LEVOTHYROXINE SODIUM
     Dosage: EACH MORNING
     Dates: start: 20160615
  12. VENLAFAXINE HYDROCHLORIDE. [Concomitant]
     Active Substance: VENLAFAXINE HYDROCHLORIDE
     Dosage: 2 DF, BID
     Dates: start: 20160615
  13. ZOPICLONE [Concomitant]
     Active Substance: ZOPICLONE
     Dosage: AT NIGHT
     Dates: start: 20160615, end: 20170110
  14. AMISULPRIDE [Concomitant]
     Active Substance: AMISULPRIDE
     Dates: start: 20160615
  15. AMISULPRIDE [Concomitant]
     Active Substance: AMISULPRIDE
     Dates: start: 20160615
  16. ERYTHROMYCIN. [Concomitant]
     Active Substance: ERYTHROMYCIN
     Dosage: TAKE ONE OR TWO
     Dates: start: 20170110
  17. AMISULPRIDE [Concomitant]
     Active Substance: AMISULPRIDE
     Indication: BLOOD PRESSURE MEASUREMENT
     Dosage: AT NIGHT.
     Dates: start: 20160615, end: 20170227
  18. ERYTHROMYCIN. [Concomitant]
     Active Substance: ERYTHROMYCIN
     Dosage: FOR 7 DAYS.
     Dates: start: 20170130, end: 20170206
  19. PROPRANOLOL HYDROCHLORIDE. [Concomitant]
     Active Substance: PROPRANOLOL HYDROCHLORIDE
     Indication: HYPERHIDROSIS
     Dosage: EACH MORNING
     Dates: start: 20160615
  20. AMISULPRIDE [Concomitant]
     Active Substance: AMISULPRIDE
     Indication: PAIN
     Dates: start: 20160615
  21. AMISULPRIDE [Concomitant]
     Active Substance: AMISULPRIDE
     Dosage: EACH MORNING
     Dates: start: 20160615
  22. CALCICHEW D3 [Concomitant]
     Active Substance: CALCIUM\CHOLECALCIFEROL
     Dosage: CHEW.
     Dates: start: 20160615, end: 20170210
  23. COCODAMOL [Concomitant]
     Active Substance: ACETAMINOPHEN\CODEINE PHOSPHATE
     Indication: PAIN
     Dosage: TAKE 1 OR 2
     Dates: start: 20160615, end: 20170110
  24. FOSTAIR [Concomitant]
     Active Substance: BECLOMETHASONE\FORMOTEROL
     Dates: start: 20170227
  25. LACTULOSE. [Concomitant]
     Active Substance: LACTULOSE
     Dosage: 15 ML, QD
     Dates: start: 20160615
  26. OSELTAMIVIR [Concomitant]
     Active Substance: OSELTAMIVIR
     Dosage: FOR 5 DAYS
     Dates: start: 20170116, end: 20170117
  27. ALBUTEROL. [Concomitant]
     Active Substance: ALBUTEROL
     Dosage: 2 DF, UNK
     Route: 055
     Dates: start: 20160615
  28. SALMETEROL [Concomitant]
     Active Substance: SALMETEROL
     Dosage: 2 DF, BID
     Route: 055
     Dates: start: 20160615, end: 20170227
  29. AMISULPRIDE [Concomitant]
     Active Substance: AMISULPRIDE
     Dosage: EACH MORNING
     Dates: start: 20160615
  30. ENOXAPARIN SODIUM. [Concomitant]
     Active Substance: ENOXAPARIN SODIUM
     Dosage: 100 MG, QD
     Route: 058
     Dates: start: 20170314
  31. FUROSEMIDE. [Concomitant]
     Active Substance: FUROSEMIDE
     Dosage: EACH MORNING
     Dates: start: 20160615
  32. LISINOPRIL. [Concomitant]
     Active Substance: LISINOPRIL
     Indication: BLOOD PRESSURE ABNORMAL
     Dosage: 1 DF, QD
     Dates: start: 20160615
  33. AMISULPRIDE [Concomitant]
     Active Substance: AMISULPRIDE
     Dosage: AT NIGHT
     Dates: start: 20160615
  34. AMISULPRIDE [Concomitant]
     Active Substance: AMISULPRIDE
     Dates: start: 20160615
  35. LANSOPRAZOLE. [Concomitant]
     Active Substance: LANSOPRAZOLE
     Dosage: 1 DF, QD
     Dates: start: 20160615
  36. ACETAMINOPHEN. [Concomitant]
     Active Substance: ACETAMINOPHEN
     Dosage: TAKE ONE OR TWO
     Dates: start: 20170110
  37. SIMVASTATIN. [Concomitant]
     Active Substance: SIMVASTATIN
     Indication: BLOOD CHOLESTEROL INCREASED
     Dosage: AT NIGHT
     Dates: start: 20160615
  38. ALENDRONATE SODIUM. [Suspect]
     Active Substance: ALENDRONATE SODIUM
     Route: 048
     Dates: start: 20160615
  39. AMISULPRIDE [Concomitant]
     Active Substance: AMISULPRIDE
     Indication: HYPERHIDROSIS
     Dosage: ONE TO TWO EVERY FOUR HOURS WHEN REQU...
     Dates: start: 20170110
  40. AMISULPRIDE [Concomitant]
     Active Substance: AMISULPRIDE
     Indication: BLOOD CHOLESTEROL INCREASED
     Route: 058
     Dates: start: 20170314
  41. AMISULPRIDE [Concomitant]
     Active Substance: AMISULPRIDE
     Route: 055
     Dates: start: 20160615

REACTIONS (2)
  - Oesophagitis [Recovering/Resolving]
  - Haematemesis [Unknown]

NARRATIVE: CASE EVENT DATE: 20170314
